FAERS Safety Report 13343820 (Version 1)
Quarter: 2017Q1

REPORT INFORMATION
  Report Type: Report from Study
  Country: US (occurrence: US)
  Receive Date: 20170316
  Receipt Date: 20170316
  Transmission Date: 20170428
  Serious: Yes (Other)
  Sender: FDA-Public Use
  Company Number: US-009507513-1703USA005060

PATIENT
  Age: 6 Decade
  Sex: Male

DRUGS (2)
  1. ZOCOR [Suspect]
     Active Substance: SIMVASTATIN
     Dosage: 20 MG, UNSPECIFIED INTERVAL
  2. NIACIN. [Concomitant]
     Active Substance: NIACIN
     Indication: HYPERLIPIDAEMIA
     Dosage: 1500 MG, UNSPECIFIED INTERVAL

REACTIONS (5)
  - Asthenia [Recovering/Resolving]
  - Exercise tolerance decreased [Recovering/Resolving]
  - Myalgia [Recovering/Resolving]
  - Blood testosterone decreased [Unknown]
  - Muscle fatigue [Recovering/Resolving]
